FAERS Safety Report 12191936 (Version 1)
Quarter: 2016Q1

REPORT INFORMATION
  Report Type: Spontaneous
  Country: US (occurrence: US)
  Receive Date: 20160318
  Receipt Date: 20160318
  Transmission Date: 20160526
  Serious: No
  Sender: FDA-Public Use
  Company Number: US-PFIZER INC-2016136916

PATIENT
  Sex: Male

DRUGS (1)
  1. EMCYT [Suspect]
     Active Substance: ESTRAMUSTINE PHOSPHATE SODIUM
     Dosage: 280 MG, 3X/DAY
     Dates: start: 201509

REACTIONS (4)
  - Penile swelling [Unknown]
  - Peripheral swelling [Unknown]
  - Dysuria [Unknown]
  - Testicular swelling [Unknown]
